FAERS Safety Report 21174807 (Version 1)
Quarter: 2022Q3

REPORT INFORMATION
  Report Type: Spontaneous
  Country: US (occurrence: US)
  Receive Date: 20220805
  Receipt Date: 20220805
  Transmission Date: 20221027
  Serious: No
  Sender: FDA-Public Use
  Company Number: US-Accord-247152

PATIENT
  Age: 63 Year
  Sex: Male
  Weight: 86.1 kg

DRUGS (6)
  1. DOCETAXEL [Suspect]
     Active Substance: DOCETAXEL
     Indication: Chemotherapy
     Dosage: STRENGTH: 75 MG/M2/DOSE WITH?SODIUM CHLORIDE 0.9% 250 ML
     Route: 042
     Dates: start: 20191230, end: 20191230
  2. DOCETAXEL [Suspect]
     Active Substance: DOCETAXEL
     Indication: Chemotherapy
     Dosage: STRENGTH: 75 MG/M2/DOSE WITH?SODIUM CHLORIDE 0.9% 250 ML
     Route: 042
     Dates: start: 20200210, end: 20200210
  3. DOCETAXEL [Suspect]
     Active Substance: DOCETAXEL
     Indication: Chemotherapy
     Dosage: STRENGTH: 75 MG/M2/DOSE WITH?SODIUM CHLORIDE 0.9% 250 ML
     Route: 042
     Dates: start: 20200120, end: 20200120
  4. DOCETAXEL [Suspect]
     Active Substance: DOCETAXEL
     Indication: Chemotherapy
     Dosage: STRENGTH: 75 MG/M2/DOSE WITH?SODIUM CHLORIDE 0.9% 250 ML
     Route: 042
     Dates: start: 20200302, end: 20200302
  5. DOCETAXEL [Suspect]
     Active Substance: DOCETAXEL
     Indication: Chemotherapy
     Dosage: STRENGTH: 75 MG/M2/DOSE WITH?SODIUM CHLORIDE 0.9% 250 ML
     Route: 042
     Dates: start: 20200324, end: 20200324
  6. DOCETAXEL [Suspect]
     Active Substance: DOCETAXEL
     Indication: Chemotherapy
     Dosage: STRENGTH: 75 MG/M2/DOSE WITH?SODIUM CHLORIDE 0.9% 250 ML
     Route: 042
     Dates: start: 20200413, end: 20200413

REACTIONS (1)
  - Lacrimation increased [Unknown]
